FAERS Safety Report 20214713 (Version 1)
Quarter: 2021Q4

REPORT INFORMATION
  Report Type: Spontaneous
  Country: GB (occurrence: GB)
  Receive Date: 20211222
  Receipt Date: 20211222
  Transmission Date: 20220303
  Serious: No
  Sender: FDA-Public Use
  Company Number: None

PATIENT

DRUGS (1)
  1. MYCOPHENOLATE MOFETIL [Suspect]
     Active Substance: MYCOPHENOLATE MOFETIL
     Indication: Eye infection syphilitic
     Dosage: 500 MILLIGRAM, BID
     Route: 048
     Dates: start: 20210205, end: 20210305

REACTIONS (1)
  - Diarrhoea [Recovered/Resolved with Sequelae]
